FAERS Safety Report 21493545 (Version 1)
Quarter: 2022Q4

REPORT INFORMATION
  Report Type: Spontaneous
  Country: US (occurrence: None)
  Receive Date: 20221021
  Receipt Date: 20221021
  Transmission Date: 20230113
  Serious: Yes (Other)
  Sender: FDA-Public Use
  Company Number: None

PATIENT
  Sex: Male

DRUGS (22)
  1. HUMIRA [Suspect]
     Active Substance: ADALIMUMAB
  2. ARIPIPRAZOLE TAB [Concomitant]
  3. ARIPIPRAZOLE TAB [Concomitant]
  4. ATENOLOL [Concomitant]
     Active Substance: ATENOLOL
  5. BACLOFEN TAB [Concomitant]
  6. BUPROPN HCL TAB [Concomitant]
  7. CLOPIDOGREL TAB [Concomitant]
  8. DIPHEN/ATROP TAB [Concomitant]
  9. DULOXETINE HYDROCHLORIDE [Concomitant]
     Active Substance: DULOXETINE HYDROCHLORIDE
  10. FLUOXETINE CAP [Concomitant]
  11. FOLIC ACID TAB [Concomitant]
  12. GABAPENTIN [Concomitant]
     Active Substance: GABAPENTIN
  13. ISOSORB MONO TAB [Concomitant]
  14. METFORMIN TAB [Concomitant]
  15. MORPHINE SUL TAB [Concomitant]
  16. OMEPRAZOLE SODIUM [Concomitant]
     Active Substance: OMEPRAZOLE SODIUM
  17. OXYCODONE AND ACETAMINOPHEN [Concomitant]
     Active Substance: ACETAMINOPHEN\OXYCODONE HYDROCHLORIDE
  18. PLAVIX TAB [Concomitant]
  19. PROMETHAZINE [Concomitant]
     Active Substance: PROMETHAZINE HYDROCHLORIDE
  20. SUCRALFATE TAB [Concomitant]
  21. TAMSULOSIN [Concomitant]
     Active Substance: TAMSULOSIN
  22. TESTOST CYP INJ [Concomitant]

REACTIONS (5)
  - Surgery [None]
  - Intentional dose omission [None]
  - Pain [None]
  - Condition aggravated [None]
  - Loss of personal independence in daily activities [None]
